FAERS Safety Report 4870216-9 (Version None)
Quarter: 2005Q4

REPORT INFORMATION
  Report Type: 
  Country: None (occurrence: None)
  Receive Date: 20051228
  Receipt Date: 20051213
  Transmission Date: 20060501
  Serious: Yes (Other)
  Sender: FDA-Public Use
  Company Number: CA-2005-027015

PATIENT
  Age: 56 Year
  Sex: Female

DRUGS (11)
  1. BETASERON [Suspect]
     Indication: RELAPSING-REMITTING MULTIPLE SCLEROSIS
     Dosage: 8 MIU, EVERY 2D, SUBCUTANEOUS
     Route: 058
     Dates: start: 20050922
  2. AVANDIA [Concomitant]
  3. NOVO-METFORMIN (METFORMIN) [Concomitant]
  4. GLYBURIDE [Concomitant]
  5. SYNTHROID [Concomitant]
  6. LIPITOR/UNK/(ATORVASTATIN) [Concomitant]
  7. MORPHINE SULFATE [Concomitant]
  8. BACLOFEN [Concomitant]
  9. NOVASEN (ACETYLSALICYLIC ACID) [Concomitant]
  10. ALTACE [Concomitant]
  11. BOTOX (BOTULINUM TOXIN TYPE A) INJECTION [Concomitant]

REACTIONS (5)
  - HAEMOGLOBIN DECREASED [None]
  - HAEMORRHAGE [None]
  - INJECTION SITE BRUISING [None]
  - INJECTION SITE ERYTHEMA [None]
  - NEOPLASM [None]
